FAERS Safety Report 10023429 (Version 1)
Quarter: 2014Q1

REPORT INFORMATION
  Report Type: Other
  Country: GB (occurrence: GB)
  Receive Date: 20140320
  Receipt Date: 20140320
  Transmission Date: 20141002
  Serious: Yes (Hospitalization)
  Sender: FDA-Public Use
  Company Number: GB-MICRO LABS LIMITED-BB2014-00165

PATIENT
  Age: 57 Year
  Sex: Male

DRUGS (9)
  1. SIMVASTATIN [Suspect]
     Indication: PRODUCT USED FOR UNKNOWN INDICATION
     Route: 065
  2. AMOXICILLIN/CLAVULANIC ACID [Suspect]
     Indication: CHRONIC OBSTRUCTIVE PULMONARY DISEASE
     Route: 048
  3. WARFARIN [Suspect]
     Indication: DEEP VEIN THROMBOSIS
     Route: 065
  4. WARFARIN [Suspect]
     Route: 065
  5. FRAGMIN [Suspect]
     Indication: DEEP VEIN THROMBOSIS
     Route: 065
  6. ASPIRIN [Suspect]
     Indication: PRODUCT USED FOR UNKNOWN INDICATION
     Route: 065
  7. HEPARIN [Suspect]
     Indication: PRODUCT USED FOR UNKNOWN INDICATION
     Route: 042
  8. BENZYLPENICILLIN [Concomitant]
     Indication: CELLULITIS
     Route: 065
  9. FLUCLOXACILLIN [Concomitant]
     Indication: CELLULITIS
     Route: 065

REACTIONS (6)
  - Compartment syndrome [Unknown]
  - Paraesthesia [Recovering/Resolving]
  - Post procedural haemorrhage [Unknown]
  - Cellulitis [Unknown]
  - International normalised ratio increased [Unknown]
  - Drug interaction [Unknown]
